FAERS Safety Report 6508312-2 (Version None)
Quarter: 2009Q4

REPORT INFORMATION
  Report Type: 
  Country: None (occurrence: None)
  Receive Date: 20091221
  Receipt Date: 20090203
  Transmission Date: 20100525
  Serious: No
  Sender: FDA-Public Use
  Company Number: US-ASTRAZENECA-2005UW14360

PATIENT
  Age: 72 Year
  Sex: Female
  Weight: 86.2 kg

DRUGS (6)
  1. CRESTOR [Suspect]
     Indication: BLOOD CHOLESTEROL INCREASED
     Route: 048
     Dates: start: 20050801
  2. CRESTOR [Suspect]
     Route: 048
     Dates: start: 20090101
  3. ZOLOFT [Concomitant]
  4. ZESTRIL [Concomitant]
  5. ATENOLOL [Concomitant]
  6. NEXIUM [Concomitant]
     Route: 048

REACTIONS (3)
  - ALOPECIA [None]
  - MUSCLE SPASMS [None]
  - PAIN IN EXTREMITY [None]
